FAERS Safety Report 5847520-0 (Version None)
Quarter: 2008Q3

REPORT INFORMATION
  Report Type: 
  Country: None (occurrence: None)
  Receive Date: 20080814
  Receipt Date: 20080731
  Transmission Date: 20090109
  Serious: Yes (Hospitalization)
  Sender: FDA-Public Use
  Company Number: 013741

PATIENT
  Age: 64 Year
  Sex: Female

DRUGS (6)
  1. PRIALT [Suspect]
     Indication: PAIN
     Dosage: 0.05 UG, ONCE/HOUR, INTRATHECAL; 0.06 UG, ONCE/HOUR, INTRATHECAL; 0.08 UG, ONCE/HOUR, INTRATHECAL; 0
     Route: 037
     Dates: start: 20080219, end: 20080304
  2. PRIALT [Suspect]
     Indication: PAIN
     Dosage: 0.05 UG, ONCE/HOUR, INTRATHECAL; 0.06 UG, ONCE/HOUR, INTRATHECAL; 0.08 UG, ONCE/HOUR, INTRATHECAL; 0
     Route: 037
     Dates: start: 20080304, end: 20080317
  3. PRIALT [Suspect]
     Indication: PAIN
     Dosage: 0.05 UG, ONCE/HOUR, INTRATHECAL; 0.06 UG, ONCE/HOUR, INTRATHECAL; 0.08 UG, ONCE/HOUR, INTRATHECAL; 0
     Route: 037
     Dates: start: 20080317, end: 20080401
  4. PRIALT [Suspect]
     Indication: PAIN
     Dosage: 0.05 UG, ONCE/HOUR, INTRATHECAL; 0.06 UG, ONCE/HOUR, INTRATHECAL; 0.08 UG, ONCE/HOUR, INTRATHECAL; 0
     Route: 037
     Dates: start: 20080401, end: 20080415
  5. PRIALT [Suspect]
     Indication: PAIN
     Dosage: 0.05 UG, ONCE/HOUR, INTRATHECAL; 0.06 UG, ONCE/HOUR, INTRATHECAL; 0.08 UG, ONCE/HOUR, INTRATHECAL; 0
     Route: 037
     Dates: start: 20080415, end: 20080429
  6. PRIALT [Suspect]
     Indication: PAIN
     Dosage: 0.05 UG, ONCE/HOUR, INTRATHECAL; 0.06 UG, ONCE/HOUR, INTRATHECAL; 0.08 UG, ONCE/HOUR, INTRATHECAL; 0
     Route: 037
     Dates: start: 20080429

REACTIONS (3)
  - CONFUSIONAL STATE [None]
  - CONVERSION DISORDER [None]
  - SUICIDAL IDEATION [None]
